FAERS Safety Report 6338583-7 (Version None)
Quarter: 2009Q3

REPORT INFORMATION
  Report Type: 
  Country: None (occurrence: None)
  Receive Date: 20090903
  Receipt Date: 20090821
  Transmission Date: 20100115
  Serious: Yes (Life-Threatening, Hospitalization)
  Sender: FDA-Public Use
  Company Number: GB-RANBAXY-2009RR-26185

PATIENT
  Age: 86 Year
  Sex: Female
  Weight: 53.6 kg

DRUGS (12)
  1. GABAPENTIN [Suspect]
     Indication: NEURALGIA
     Dosage: 300 MG, TID
     Route: 048
     Dates: start: 20090716, end: 20090717
  2. GABAPENTIN [Suspect]
     Dosage: 300 MG, QD
     Dates: start: 20090714, end: 20090714
  3. GABAPENTIN [Suspect]
     Dosage: 300 MG, BID
     Dates: start: 20090715, end: 20090715
  4. ALENDRONIC ACID [Concomitant]
     Dosage: 70 MG, UNK
  5. CLOPIDOGREL HYDROGEN SULPHATE [Concomitant]
     Dosage: 75 MG, QD
  6. FUROSEMIDE [Concomitant]
     Dosage: 40 MG, QD
  7. MIRTAZAPINE [Concomitant]
     Dosage: 30 MG, QD
  8. OMEPRAZOLE [Concomitant]
     Dosage: 10 MG, QD
  9. PARACETAMOL [Concomitant]
  10. SIMVASTATIN [Concomitant]
     Dosage: 20 MG, QD
  11. TRAMADOL HCL [Concomitant]
     Dosage: 100 MG, QID
  12. ZOPICLONE [Concomitant]
     Dosage: 3.75 MG, QD

REACTIONS (4)
  - ALANINE AMINOTRANSFERASE INCREASED [None]
  - HEPATIC ENCEPHALOPATHY [None]
  - INTERNATIONAL NORMALISED RATIO [None]
  - MYOCLONUS [None]
